FAERS Safety Report 4657519-8 (Version None)
Quarter: 2005Q2

REPORT INFORMATION
  Report Type: 
  Country: None (occurrence: None)
  Receive Date: 20050510
  Receipt Date: 20050503
  Transmission Date: 20051028
  Serious: Yes (Hospitalization)
  Sender: FDA-Public Use
  Company Number: FR-RB-1584-2005

PATIENT
  Age: 25 Year
  Sex: Female

DRUGS (2)
  1. BUPRENORPHINE HCL [Suspect]
     Indication: DRUG DEPENDENCE
     Dosage: DOSAGE UNKNOWN
     Route: 042
     Dates: start: 20020101
  2. BUPRENORPHINE HCL [Suspect]
     Dosage: 1 MG 24/48 HOURS
     Route: 065
     Dates: start: 20050101

REACTIONS (5)
  - ARTERIAL THROMBOSIS LIMB [None]
  - COAGULOPATHY [None]
  - EXTREMITY NECROSIS [None]
  - INTENTIONAL MISUSE [None]
  - NECROSIS [None]
